FAERS Safety Report 5409222-4 (Version None)
Quarter: 2007Q3

REPORT INFORMATION
  Report Type: 
  Country: None (occurrence: None)
  Receive Date: 20070807
  Receipt Date: 20070807
  Transmission Date: 20080115
  Serious: Yes (Death, Life-Threatening, Hospitalization)
  Sender: FDA-Public Use
  Company Number: None

PATIENT
  Age: 78 Year
  Sex: Male
  Weight: 70.7 kg

DRUGS (9)
  1. COUMADIN [Suspect]
     Indication: ATRIAL FIBRILLATION
     Dosage: 5MG 2 DAYS/WEEK PO CHRONIC
     Route: 048
  2. COUMADIN [Suspect]
     Indication: ATRIAL FIBRILLATION
     Dosage: 2.5MG 5 DAYS/WEEK PO CHRONIC
     Route: 048
  3. GLIPIZIDE [Concomitant]
  4. TOPROL-XL [Concomitant]
  5. PREDNISONE TAB [Concomitant]
  6. LANOXIN [Concomitant]
  7. COUMADIN [Concomitant]
  8. BUMEX [Concomitant]
  9. LISINOPRIL [Concomitant]

REACTIONS (10)
  - BLOOD PRESSURE INCREASED [None]
  - EYE HAEMORRHAGE [None]
  - HAEMATOMA [None]
  - HEAD INJURY [None]
  - HEART RATE DECREASED [None]
  - NAUSEA [None]
  - PUPIL FIXED [None]
  - SYNCOPE [None]
  - UNRESPONSIVE TO STIMULI [None]
  - VOMITING [None]
